FAERS Safety Report 4873362-9 (Version None)
Quarter: 2006Q1

REPORT INFORMATION
  Report Type: 
  Country: None (occurrence: None)
  Receive Date: 20060105
  Receipt Date: 20050916
  Transmission Date: 20060701
  Serious: Yes (Hospitalization)
  Sender: FDA-Public Use
  Company Number: 2005AP04998

PATIENT
  Age: 17157 Day
  Sex: Male
  Weight: 58 kg

DRUGS (19)
  1. IRESSA [Suspect]
     Indication: NON-SMALL CELL LUNG CANCER STAGE IIIB
     Route: 048
     Dates: start: 20050804, end: 20050915
  2. IRESSA [Suspect]
     Indication: LARGE CELL LUNG CANCER STAGE IV
     Route: 048
     Dates: start: 20050804, end: 20050915
  3. IRESSA [Suspect]
     Route: 048
     Dates: start: 20050928, end: 20051006
  4. IRESSA [Suspect]
     Route: 048
     Dates: start: 20050928, end: 20051006
  5. RADIOTHERAPY [Concomitant]
     Dosage: 60 GY RIGHT MEDIASTINUM
     Dates: start: 20050228, end: 20050411
  6. MS CONTIN [Concomitant]
     Indication: PAIN
     Route: 048
     Dates: start: 20050627, end: 20050804
  7. MS CONTIN [Concomitant]
     Route: 048
     Dates: start: 20050805, end: 20051006
  8. MUCODYNE [Concomitant]
     Indication: SPUTUM RETENTION
     Route: 048
     Dates: start: 20050627
  9. LOXONIN [Concomitant]
     Indication: PAIN
     Route: 048
     Dates: start: 20050805
  10. HUSTAGIN [Concomitant]
     Indication: COUGH
     Route: 048
     Dates: start: 20050807
  11. MEDICON [Concomitant]
     Indication: COUGH
     Route: 048
     Dates: start: 20050807
  12. NOLEPTAN [Concomitant]
     Indication: COUGH
     Route: 048
     Dates: start: 20050807, end: 20050825
  13. SELBEX [Concomitant]
     Indication: GASTROINTESTINAL DISORDER
     Route: 048
     Dates: start: 20050908
  14. CARBOPLATIN [Concomitant]
     Dosage: 3 CYCLES
     Dates: start: 20050222, end: 20050509
  15. VINORELBINE TARTRATE [Concomitant]
     Dates: start: 20050222, end: 20050516
  16. CODEINE PHOSPHATE [Concomitant]
     Indication: COUGH
     Route: 048
     Dates: end: 20050805
  17. GASTER D [Concomitant]
     Indication: GASTROINTESTINAL DISORDER
     Route: 048
     Dates: end: 20050825
  18. MAGNESIUM OXIDE [Concomitant]
     Indication: CONSTIPATION PROPHYLAXIS
     Route: 048
  19. CATLEP [Concomitant]
     Indication: MUSCULOSKELETAL STIFFNESS

REACTIONS (4)
  - ANOREXIA [None]
  - ECZEMA [None]
  - MALAISE [None]
  - SOMNOLENCE [None]
